FAERS Safety Report 6912027-6 (Version None)
Quarter: 2010Q3

REPORT INFORMATION
  Report Type: 
  Country: None (occurrence: None)
  Receive Date: 20100806
  Receipt Date: 20071023
  Transmission Date: 20110219
  Serious: No
  Sender: FDA-Public Use
  Company Number: US-PFIZER INC-2007086164

PATIENT
  Sex: Female
  Weight: 61.23 kg

DRUGS (4)
  1. DETROL LA [Suspect]
     Indication: POLLAKIURIA
     Dates: start: 20050101
  2. LISINOPRIL [Concomitant]
     Indication: BLOOD PRESSURE
  3. VITAMIN TAB [Concomitant]
  4. CALCIUM [Concomitant]

REACTIONS (1)
  - DRUG INEFFECTIVE [None]
